FAERS Safety Report 6913459-2 (Version None)
Quarter: 2010Q3

REPORT INFORMATION
  Report Type: 
  Country: None (occurrence: None)
  Receive Date: 20100804
  Receipt Date: 20100804
  Transmission Date: 20110219
  Serious: Yes (Life-Threatening, Hospitalization, Disabling, Other)
  Sender: FDA-Public Use
  Company Number: None

PATIENT
  Sex: Male
  Weight: 133.8111 kg

DRUGS (1)
  1. LYRICA [Suspect]
     Indication: PAIN
     Dosage: 1 CAP 3 TIMES ORAL (ABOUT 2 MONTHS AGO)
     Route: 048

REACTIONS (4)
  - HYPERSENSITIVITY [None]
  - HYPERTENSION [None]
  - MOOD SWINGS [None]
  - SHOCK [None]
